FAERS Safety Report 10953167 (Version 1)
Quarter: 2015Q1

REPORT INFORMATION
  Report Type: Spontaneous
  Country: US (occurrence: US)
  Receive Date: 20150325
  Receipt Date: 20150325
  Transmission Date: 20150721
  Serious: No
  Sender: FDA-Public Use
  Company Number: US-009507513-1503USA011721

PATIENT
  Age: 45 Year
  Sex: Male
  Weight: 90.7 kg

DRUGS (2)
  1. AMOXICILLIN. [Concomitant]
     Active Substance: AMOXICILLIN
     Indication: SINUSITIS
     Dosage: UNK, UNKNOWN
  2. TINACTIN [Suspect]
     Active Substance: TOLNAFTATE
     Indication: TINEA PEDIS
     Dosage: UNK, UNKNOWN
     Route: 061
     Dates: start: 20150321

REACTIONS (3)
  - Feeling abnormal [Unknown]
  - Drug administered at inappropriate site [Unknown]
  - Exposure via inhalation [Unknown]

NARRATIVE: CASE EVENT DATE: 20150322
